FAERS Safety Report 4649434-0 (Version None)
Quarter: 2005Q2

REPORT INFORMATION
  Report Type: 
  Country: None (occurrence: None)
  Receive Date: 20050502
  Receipt Date: 20050328
  Transmission Date: 20051028
  Serious: Yes (Disabling)
  Sender: FDA-Public Use
  Company Number: 200510932JP

PATIENT
  Age: 56 Year
  Sex: Male
  Weight: 67.5 kg

DRUGS (5)
  1. TAXOTERE [Suspect]
     Indication: LUNG NEOPLASM MALIGNANT
     Route: 041
     Dates: start: 20050314, end: 20050314
  2. TAXOTERE [Suspect]
     Indication: VOMITING
     Route: 041
     Dates: start: 20050314, end: 20050314
  3. TS 1                                    /JPN/ [Suspect]
     Indication: LUNG NEOPLASM MALIGNANT
     Route: 048
     Dates: start: 20050315, end: 20050326
  4. SEROTONE [Concomitant]
     Indication: PROPHYLAXIS
     Route: 042
     Dates: start: 20050314, end: 20050314
  5. DECADRON [Concomitant]
     Indication: PROPHYLAXIS
     Route: 042
     Dates: start: 20050314, end: 20050314

REACTIONS (4)
  - CEREBRAL INFARCTION [None]
  - CONDITION AGGRAVATED [None]
  - METASTASES TO LYMPH NODES [None]
  - THROMBOSIS [None]
